FAERS Safety Report 5574757-0 (Version None)
Quarter: 2007Q4

REPORT INFORMATION
  Report Type: 
  Country: None (occurrence: None)
  Receive Date: 20071226
  Receipt Date: 20071226
  Transmission Date: 20080405
  Serious: Yes (Life-Threatening, Hospitalization, Disabling, Other)
  Sender: FDA-Public Use
  Company Number: None

PATIENT
  Age: 47 Year
  Sex: Male
  Weight: 57.1532 kg

DRUGS (2)
  1. PLAQUENIL [Suspect]
     Indication: FIBROMYALGIA
     Dosage: REPEATEDLY INADVERTENTLY INJECTED VIA SKIN - PRODUCT NEVER SWALLOWED
     Dates: start: 20070901
  2. PLAQUENIL [Suspect]
     Indication: IMMUNE SYSTEM DISORDER
     Dosage: REPEATEDLY INADVERTENTLY INJECTED VIA SKIN - PRODUCT NEVER SWALLOWED
     Dates: start: 20070901

REACTIONS (15)
  - CHEST PAIN [None]
  - CONDITION AGGRAVATED [None]
  - EYE PAIN [None]
  - FIBROMYALGIA [None]
  - GASTROINTESTINAL DISORDER [None]
  - IMMUNE SYSTEM DISORDER [None]
  - MASS [None]
  - PAIN [None]
  - PRURITUS [None]
  - SKIN DISORDER [None]
  - SKIN IRRITATION [None]
  - THERAPEUTIC PRODUCT CONTAMINATION [None]
  - VISION BLURRED [None]
  - VISUAL ACUITY REDUCED [None]
  - VISUAL DISTURBANCE [None]
